FAERS Safety Report 12573558 (Version 1)
Quarter: 2016Q3

REPORT INFORMATION
  Report Type: Spontaneous
  Country: US (occurrence: US)
  Receive Date: 20160720
  Receipt Date: 20160720
  Transmission Date: 20161109
  Serious: Yes (Other)
  Sender: FDA-Public Use
  Company Number: US-STRIDES ARCOLAB LIMITED-2016SP000005

PATIENT

DRUGS (2)
  1. MYCOPHENOLATE MOFETIL. [Suspect]
     Active Substance: MYCOPHENOLATE MOFETIL
     Indication: RENAL TRANSPLANT
     Dosage: 2 G/D
  2. TACROLIMUS. [Concomitant]
     Active Substance: TACROLIMUS
     Indication: RENAL TRANSPLANT
     Dosage: 16 MG, QD

REACTIONS (5)
  - Aphthous ulcer [Recovered/Resolved]
  - Odynophagia [Recovered/Resolved]
  - Oral mucosal erythema [Recovered/Resolved]
  - Oral pain [Recovered/Resolved]
  - Mouth haemorrhage [Recovered/Resolved]
